FAERS Safety Report 4339554-2 (Version None)
Quarter: 2004Q1

REPORT INFORMATION
  Report Type: 
  Country: None (occurrence: None)
  Receive Date: 20040329
  Receipt Date: 20040112
  Transmission Date: 20041129
  Serious: No
  Sender: FDA-Public Use
  Company Number: 04P-163-0246873-00

PATIENT
  Age: 56 Year
  Sex: Male
  Weight: 70.3075 kg

DRUGS (6)
  1. HUMIRA [Suspect]
     Indication: RHEUMATOID ARTHRITIS
     Dosage: 40 MG, 1 IN 2 WK, SUBCUTANEOUS
     Route: 058
     Dates: start: 20031226, end: 20040109
  2. PREDNISONE TAB [Concomitant]
  3. LEVOTHYROXINE SODIUM [Concomitant]
  4. FOLIC ACID [Concomitant]
  5. TRIAMTERENE [Concomitant]
  6. QUINAPRL HYDROCHLORIDE [Concomitant]

REACTIONS (2)
  - RASH GENERALISED [None]
  - SWELLING FACE [None]
